FAERS Safety Report 22521225 (Version 2)
Quarter: 2023Q2

REPORT INFORMATION
  Report Type: Spontaneous
  Country: US (occurrence: US)
  Receive Date: 20230605
  Receipt Date: 20230623
  Transmission Date: 20230721
  Serious: Yes (Hospitalization, Other)
  Sender: FDA-Public Use
  Company Number: US-BRISTOL-MYERS SQUIBB COMPANY-2023-078717

PATIENT
  Age: 77 Year
  Sex: Female
  Weight: 67.59 kg

DRUGS (2)
  1. REVLIMID [Suspect]
     Active Substance: LENALIDOMIDE
     Indication: Chronic lymphocytic leukaemia
     Dosage: 3WKSON,1WKOFF ( 21D OF 28DAYS)
     Route: 048
     Dates: start: 20230501
  2. REVLIMID [Suspect]
     Active Substance: LENALIDOMIDE
     Indication: Follicular lymphoma

REACTIONS (2)
  - Thrombosis [Unknown]
  - Muscle spasms [Unknown]
